FAERS Safety Report 24246545 (Version 1)
Quarter: 2024Q3

REPORT INFORMATION
  Report Type: Spontaneous
  Country: US (occurrence: US)
  Receive Date: 20240825
  Receipt Date: 20240825
  Transmission Date: 20241017
  Serious: Yes (Hospitalization, Other)
  Sender: AMGEN
  Company Number: US-AMGEN-USASP2024164197

PATIENT

DRUGS (2)
  1. RITUXIMAB [Suspect]
     Active Substance: RITUXIMAB
     Indication: Interstitial lung disease
     Dosage: UNK
     Route: 065
  2. RITUXIMAB [Suspect]
     Active Substance: RITUXIMAB
     Indication: Systemic scleroderma

REACTIONS (6)
  - Respiratory disorder [Unknown]
  - Vital capacity decreased [Unknown]
  - Lung diffusion test decreased [Unknown]
  - Computerised tomogram abnormal [Unknown]
  - Infection [Unknown]
  - Off label use [Unknown]
